FAERS Safety Report 6690051-9 (Version None)
Quarter: 2010Q2

REPORT INFORMATION
  Report Type: 
  Country: None (occurrence: None)
  Receive Date: 20100421
  Receipt Date: 20100413
  Transmission Date: 20101027
  Serious: Yes (Other)
  Sender: FDA-Public Use
  Company Number: PHHY2010FR22703

PATIENT
  Age: 89 Year
  Sex: Female

DRUGS (3)
  1. ACLASTA [Suspect]
     Indication: OSTEOPOROSIS
     Dosage: 5 MG
     Route: 042
  2. SIMVASTATIN [Concomitant]
  3. PIASCLEDINE [Concomitant]

REACTIONS (2)
  - BREATH ODOUR [None]
  - DRY MOUTH [None]
